FAERS Safety Report 8042129-5 (Version None)
Quarter: 2012Q1

REPORT INFORMATION
  Report Type: 
  Country: None (occurrence: None)
  Receive Date: 20120112
  Receipt Date: 20111229
  Transmission Date: 20120608
  Serious: Yes (Other)
  Sender: FDA-Public Use
  Company Number: GB-MYLANLABS-2012S1000251

PATIENT
  Age: 48 Year
  Sex: Male
  Weight: 103 kg

DRUGS (6)
  1. RANITIDINE [Concomitant]
     Indication: GASTROOESOPHAGEAL REFLUX DISEASE
     Route: 048
     Dates: start: 20080101
  2. VALPROATE SODIUM [Concomitant]
     Indication: EPILEPSY
     Route: 048
     Dates: start: 20000101
  3. SULFASALAZINE [Concomitant]
     Indication: RHEUMATOID ARTHRITIS
     Route: 048
     Dates: start: 20110201
  4. GABAPENTIN [Suspect]
     Indication: TREMOR
     Route: 048
     Dates: start: 20110913, end: 20111130
  5. ACETAMINOPHEN [Concomitant]
     Indication: PAIN
     Route: 048
     Dates: start: 20000101
  6. TEGRETOL [Concomitant]
     Indication: EPILEPSY
     Route: 048
     Dates: start: 19990101

REACTIONS (1)
  - NEUTROPENIA [None]
